FAERS Safety Report 13702184 (Version 1)
Quarter: 2017Q2

REPORT INFORMATION
  Report Type: Spontaneous
  Country: US (occurrence: US)
  Receive Date: 20170629
  Receipt Date: 20170629
  Transmission Date: 20170830
  Serious: Yes (Other)
  Sender: FDA-Public Use
  Company Number: US-MYLANLABS-2017M1038806

PATIENT

DRUGS (2)
  1. THIOTEPA. [Suspect]
     Active Substance: THIOTEPA
     Indication: GERM CELL CANCER
     Dosage: THREE CYCLES OF THIOTEPA FOR TWO DAYS/CYCLE WITH CUMULATIVE DOSE OF 1200MG/M2
     Route: 065
  2. ETOPOSIDE. [Suspect]
     Active Substance: ETOPOSIDE
     Indication: GERM CELL CANCER
     Dosage: DAILY ETOPOSIDE FOR 10 DAYS WITH CUMULATIVE DOSE OF 1500MG/M2
     Route: 048

REACTIONS (1)
  - Brain injury [Unknown]
